FAERS Safety Report 7750775-9 (Version None)
Quarter: 2011Q3

REPORT INFORMATION
  Report Type: 
  Country: None (occurrence: None)
  Receive Date: 20110914
  Receipt Date: 20110909
  Transmission Date: 20111222
  Serious: Yes (Other)
  Sender: FDA-Public Use
  Company Number: FR-AMGEN-FRACT2011046455

PATIENT
  Age: 69 Year
  Sex: Male

DRUGS (1)
  1. DENOSUMAB [Suspect]
     Indication: PROSTATE CANCER
     Dosage: 120 MG, QWK
     Route: 058
     Dates: start: 20110208, end: 20110823

REACTIONS (1)
  - OSTEONECROSIS [None]
